FAERS Safety Report 5479498-6 (Version None)
Quarter: 2007Q3

REPORT INFORMATION
  Report Type: 
  Country: None (occurrence: None)
  Receive Date: 20070913
  Receipt Date: 20070904
  Transmission Date: 20080115
  Serious: Yes (Other)
  Sender: FDA-Public Use
  Company Number: 38561

PATIENT
  Age: 75 Year
  Sex: Male
  Weight: 112.9457 kg

DRUGS (2)
  1. PACLITAXEL [Suspect]
     Indication: NON-SMALL CELL LUNG CANCER
     Dosage: 140MG/IV
     Route: 042
     Dates: start: 20070605
  2. CARBOPLATIN [Concomitant]

REACTIONS (1)
  - FLUSHING [None]
